FAERS Safety Report 6257419-6 (Version None)
Quarter: 2009Q3

REPORT INFORMATION
  Report Type: 
  Country: None (occurrence: None)
  Receive Date: 20090706
  Receipt Date: 20090624
  Transmission Date: 20100115
  Serious: Yes (Hospitalization)
  Sender: FDA-Public Use
  Company Number: DE-MERCK-0906DEU00085

PATIENT
  Age: 52 Year
  Sex: Male

DRUGS (1)
  1. PRIMAXIN [Suspect]
     Indication: PNEUMONIA ESCHERICHIA
     Route: 065
     Dates: start: 20020101, end: 20020101

REACTIONS (2)
  - DRUG INEFFECTIVE [None]
  - INFECTIVE THROMBOSIS [None]
